FAERS Safety Report 5329429-4 (Version None)
Quarter: 2007Q2

REPORT INFORMATION
  Report Type: 
  Country: None (occurrence: None)
  Receive Date: 20070220
  Receipt Date: 20060215
  Transmission Date: 20071010
  Serious: Yes (Other)
  Sender: FDA-Public Use
  Company Number: HQWYE931722FEB06

PATIENT
  Age: 3 Year
  Sex: Female
  Weight: 15.89 kg

DRUGS (2)
  1. CHILDREN'S ADVIL [Suspect]
     Indication: NASOPHARYNGITIS
     Dosage: 2 TABLETS X 1, ORAL
     Route: 048
     Dates: start: 20060213, end: 20060213
  2. COUGH AND COLD PREPARATIONS (COUGH AND COLD PREPARATIONS) [Concomitant]

REACTIONS (1)
  - ORAL DISCOMFORT [None]
